FAERS Safety Report 9362956 (Version 1)
Quarter: 2013Q2

REPORT INFORMATION
  Report Type: Spontaneous
  Country: US (occurrence: None)
  Receive Date: 20130619
  Receipt Date: 20130619
  Transmission Date: 20140414
  Serious: Yes (Death, Hospitalization)
  Sender: FDA-Public Use
  Company Number: DAV-AE-FUR-13-05

PATIENT
  Age: 68 Year
  Sex: Male

DRUGS (14)
  1. FUROSEMIDE [Suspect]
     Indication: CARDIAC FAILURE CONGESTIVE
     Dosage: SEE NARRATIVE
  2. AMPICILLIN/SULBACTAM [Concomitant]
  3. GENTAMICIN [Concomitant]
  4. ASPIRIN [Concomitant]
  5. IV HEPARIN [Concomitant]
  6. IV FUROSEMIDE [Concomitant]
  7. POTASSIUM CHLORIDE [Concomitant]
  8. LISINOPRIL [Concomitant]
  9. METOPROLOL TARTRATE [Concomitant]
  10. NITROGLYCERIN [Concomitant]
  11. SIMVASTATIN [Concomitant]
  12. MORPHINE [Concomitant]
  13. OMEPRAZOLE [Concomitant]
  14. TAMSULOSIN [Concomitant]

REACTIONS (7)
  - Metabolic acidosis [None]
  - Hypokalaemia [None]
  - Pulmonary oedema [None]
  - Blood pressure systolic increased [None]
  - Atrial fibrillation [None]
  - Aortic valve incompetence [None]
  - Mitral valve incompetence [None]
